FAERS Safety Report 8954731 (Version 1)
Quarter: 2012Q4

REPORT INFORMATION
  Report Type: 
  Country: FR (occurrence: FR)
  Receive Date: 20121207
  Receipt Date: 20121207
  Transmission Date: 20130627
  Serious: Yes (Death)
  Sender: FDA-Public Use
  Company Number: FR-ASTRAZENECA-2012SE91164

PATIENT
  Age: 86 Year
  Sex: Male

DRUGS (7)
  1. INEXIUM [Suspect]
     Route: 048
     Dates: start: 20120812, end: 20120825
  2. CALCIPARINE [Suspect]
     Indication: ANTICOAGULANT THERAPY
     Route: 058
     Dates: start: 20120811, end: 20120822
  3. LASILIX [Suspect]
     Route: 048
     Dates: start: 20120812, end: 20120823
  4. TAHOR [Suspect]
     Route: 048
     Dates: start: 20120812, end: 20120821
  5. CARDENSIEL [Suspect]
     Route: 048
     Dates: start: 20120812, end: 20120902
  6. INSULATARD NPH HUMAN [Suspect]
     Dosage: 100 IU/mL
     Route: 058
     Dates: start: 20120401
  7. KARDEGIC [Suspect]
     Route: 048
     Dates: start: 20120812, end: 20120822

REACTIONS (2)
  - Heparin-induced thrombocytopenia [Fatal]
  - Malignant neoplasm progression [Fatal]
